FAERS Safety Report 10971868 (Version 1)
Quarter: 2015Q1

REPORT INFORMATION
  Report Type: Spontaneous
  Country: US (occurrence: None)
  Receive Date: 20150330
  Receipt Date: 20150330
  Transmission Date: 20150721
  Serious: Yes (Other)
  Sender: FDA-Public Use
  Company Number: None

PATIENT
  Age: 68 Year
  Sex: Female
  Weight: 74.84 kg

DRUGS (4)
  1. CLONIDINE HCL [Concomitant]
     Active Substance: CLONIDINE HYDROCHLORIDE
  2. OMEGA 3 [Concomitant]
     Active Substance: OMEGA-3 FATTY ACIDS
  3. TRIAMTERENE HCTZ [Suspect]
     Active Substance: HYDROCHLOROTHIAZIDE\TRIAMTERENE
     Indication: BLOOD PRESSURE
     Dates: end: 20150115
  4. CLONIDINE. [Concomitant]
     Active Substance: CLONIDINE

REACTIONS (7)
  - Erythema [None]
  - Arthralgia [None]
  - Joint crepitation [None]
  - Pain [None]
  - Arthropathy [None]
  - Asthenia [None]
  - Swelling [None]

NARRATIVE: CASE EVENT DATE: 201412
